FAERS Safety Report 4667518-8 (Version None)
Quarter: 2005Q2

REPORT INFORMATION
  Report Type: 
  Country: None (occurrence: None)
  Receive Date: 20050519
  Receipt Date: 20050519
  Transmission Date: 20051028
  Serious: Yes (Hospitalization)
  Sender: FDA-Public Use
  Company Number: None

PATIENT
  Age: 67 Year
  Sex: Male
  Weight: 112.0385 kg

DRUGS (3)
  1. WARFARIN  2.5MG [Suspect]
     Indication: DEEP VEIN THROMBOSIS
     Dosage: 2.5MG  QD ORAL
     Route: 048
     Dates: start: 20040407, end: 20050516
  2. WARFARIN  2.5MG [Suspect]
     Indication: PULMONARY EMBOLISM
     Dosage: 2.5MG  QD ORAL
     Route: 048
     Dates: start: 20040407, end: 20050516
  3. ASPIRIN [Suspect]
     Indication: CORONARY ARTERY ATHEROSCLEROSIS
     Dosage: 325MG  QD ORAL
     Route: 048
     Dates: start: 20050427, end: 20050516

REACTIONS (6)
  - ANGINA PECTORIS [None]
  - BLOOD UREA INCREASED [None]
  - GASTROINTESTINAL HAEMORRHAGE [None]
  - MICROCYTIC ANAEMIA [None]
  - SHOULDER PAIN [None]
  - UPPER GASTROINTESTINAL HAEMORRHAGE [None]
